FAERS Safety Report 12448901 (Version 4)
Quarter: 2017Q2

REPORT INFORMATION
  Report Type: Report from Study
  Country: US (occurrence: US)
  Receive Date: 20160608
  Receipt Date: 20170623
  Transmission Date: 20170830
  Serious: Yes (Hospitalization, Other)
  Sender: FDA-Public Use
  Company Number: US-AMGEN-USASL2016024600

PATIENT
  Age: 69 Year
  Sex: Male

DRUGS (4)
  1. NPLATE [Suspect]
     Active Substance: ROMIPLOSTIM
     Indication: IMMUNE THROMBOCYTOPENIC PURPURA
     Dosage: 425 MCG, QWK
     Route: 065
     Dates: start: 20111031
  2. NPLATE [Suspect]
     Active Substance: ROMIPLOSTIM
     Dosage: 225 MCG, UNK
     Route: 065
     Dates: start: 20160903
  3. NPLATE [Suspect]
     Active Substance: ROMIPLOSTIM
     Dosage: 250 MCG, Q2WK
     Route: 065
  4. NPLATE [Suspect]
     Active Substance: ROMIPLOSTIM
     Dosage: 250 MCG, QWK
     Route: 065

REACTIONS (17)
  - Coronary artery bypass [Unknown]
  - Lung disorder [Not Recovered/Not Resolved]
  - Fall [Unknown]
  - Foot fracture [Unknown]
  - Neuropathy peripheral [Unknown]
  - Platelet count decreased [Unknown]
  - Off label use [Unknown]
  - Platelet count increased [Unknown]
  - Pulmonary air leakage [Unknown]
  - Platelet count abnormal [Unknown]
  - Pyrexia [Unknown]
  - Chest tube removal [Unknown]
  - Thoracostomy [Unknown]
  - Drug effect delayed [Unknown]
  - Asthenia [Unknown]
  - Mole excision [Unknown]
  - Post procedural complication [Unknown]

NARRATIVE: CASE EVENT DATE: 20151226
